FAERS Safety Report 22278916 (Version 1)
Quarter: 2023Q2

REPORT INFORMATION
  Report Type: Spontaneous
  Country: GB (occurrence: GB)
  Receive Date: 20230503
  Receipt Date: 20230503
  Transmission Date: 20230722
  Serious: Yes (Other)
  Sender: FDA-Public Use
  Company Number: None

PATIENT
  Age: 70 Year
  Sex: Male
  Weight: 98 kg

DRUGS (8)
  1. CANDESARTAN [Suspect]
     Active Substance: CANDESARTAN
     Indication: Product used for unknown indication
     Dosage: 8 MILLIGRAM, QD
     Route: 065
     Dates: start: 20230127, end: 20230420
  2. AMLODIPINE [Concomitant]
     Active Substance: AMLODIPINE BESYLATE
     Dosage: 1 DOSAGE FORM, QD
     Route: 065
     Dates: start: 20221209
  3. ATORVASTATIN [Concomitant]
     Active Substance: ATORVASTATIN
     Dosage: 1 DOSAGE FORM, QD (NIGHT)
     Route: 065
     Dates: start: 20221209
  4. BISACODYL [Concomitant]
     Active Substance: BISACODYL
     Indication: Constipation
     Dosage: UNK, ONE OR TWO TABLETS AT NIGHT FOR CONSTIPATION RE
     Route: 065
     Dates: start: 20221209
  5. HYDROCORTISONE [Concomitant]
     Active Substance: HYDROCORTISONE
     Dosage: 1 DOSAGE FORM, BID (APPLY)
     Route: 065
     Dates: start: 20221209
  6. LANSOPRAZOLE [Concomitant]
     Active Substance: LANSOPRAZOLE
     Dosage: 1 DOSAGE FORM, QD
     Route: 065
     Dates: start: 20221209
  7. MESALAMINE [Concomitant]
     Active Substance: MESALAMINE
     Dosage: 2 DOSAGE FORM, BID
     Route: 065
     Dates: start: 20221209
  8. SILDENAFIL [Concomitant]
     Active Substance: SILDENAFIL
     Dosage: 1 DOSAGE FORM (AS NECESSARY)
     Route: 065
     Dates: start: 20221209

REACTIONS (1)
  - Erectile dysfunction [Unknown]
